FAERS Safety Report 7280262-6 (Version None)
Quarter: 2011Q1

REPORT INFORMATION
  Report Type: 
  Country: None (occurrence: None)
  Receive Date: 20110208
  Receipt Date: 20101129
  Transmission Date: 20110831
  Serious: Yes (Hospitalization, Other)
  Sender: FDA-Public Use
  Company Number: US-BAYER-201011571NA

PATIENT
  Sex: Female
  Weight: 53.061 kg

DRUGS (10)
  1. YAZ [Suspect]
     Indication: MENSTRUATION IRREGULAR
  2. YASMIN [Suspect]
     Indication: CONTRACEPTION
     Dosage: UNK UNK, QD
     Route: 048
     Dates: start: 20050101, end: 20070101
  3. PROPRANOLOL [Concomitant]
     Indication: HYPERTENSION
     Dosage: 20 MG, QD
     Route: 048
  4. YAZ [Suspect]
     Indication: ACNE
  5. YASMIN [Suspect]
     Indication: MENSTRUATION IRREGULAR
  6. YAZ [Suspect]
     Indication: PREMENSTRUAL SYNDROME
  7. CONCERTA [Concomitant]
     Indication: ATTENTION DEFICIT/HYPERACTIVITY DISORDER
     Dosage: 36 MG, UNK
     Route: 048
  8. YAZ [Suspect]
     Indication: CONTRACEPTION
     Dosage: UNK UNK, QD
     Route: 048
     Dates: start: 20080101, end: 20090101
  9. YASMIN [Suspect]
     Indication: ACNE
  10. YASMIN [Suspect]
     Indication: PREMENSTRUAL SYNDROME

REACTIONS (3)
  - CHOLECYSTITIS CHRONIC [None]
  - CHOLELITHIASIS [None]
  - PAIN [None]
